FAERS Safety Report 9739666 (Version 6)
Quarter: 2014Q3

REPORT INFORMATION
  Report Type: Spontaneous
  Country: US (occurrence: US)
  Receive Date: 20131209
  Receipt Date: 20140725
  Transmission Date: 20150326
  Serious: Yes (Other)
  Sender: FDA-Public Use
  Company Number: US-BAYER-2013-149814

PATIENT
  Age: 50 Year
  Sex: Female
  Weight: 96.15 kg

DRUGS (13)
  1. ALEVE [Interacting]
     Active Substance: NAPROXEN SODIUM
     Indication: MIGRAINE
     Dosage: 2 DF, PRN
     Route: 048
     Dates: end: 201312
  2. DIFLUCAN [Concomitant]
     Active Substance: FLUCONAZOLE
     Indication: ONYCHOMYCOSIS
     Dosage: 150 MG, ONCE
     Dates: start: 20130809, end: 20130809
  3. ALEVE [Concomitant]
     Active Substance: NAPROXEN SODIUM
     Dosage: 1 DF, PRN
     Route: 048
  4. MIRTAZAPINE. [Concomitant]
     Active Substance: MIRTAZAPINE
     Dosage: 45 MG, HS
     Route: 048
  5. LAMISIL [Concomitant]
     Active Substance: TERBINAFINE HYDROCHLORIDE
     Indication: ONYCHOMYCOSIS
     Dosage: 250 MG, QD
     Route: 048
     Dates: end: 20130809
  6. CARISOPRODOL. [Concomitant]
     Active Substance: CARISOPRODOL
     Indication: NECK INJURY
     Dosage: 350 MG, PRN
  7. CARISOPRODOL. [Concomitant]
     Active Substance: CARISOPRODOL
     Indication: JOINT INJURY
  8. SOMA [Concomitant]
     Active Substance: CARISOPRODOL
     Dosage: 350 MG, TID
     Route: 048
  9. BAYER CHEWABLE LOW DOSE BABY ASPIRIN TABLET ORANGE [Interacting]
     Active Substance: ASPIRIN
     Indication: ISCHAEMIC HEART DISEASE PROPHYLAXIS
     Dosage: 4 DF, ONCE
     Route: 048
     Dates: start: 20130909, end: 20130909
  10. MIGRANAL [Concomitant]
     Active Substance: DIHYDROERGOTAMINE MESYLATE
     Dosage: 1 PUFF(S), QID
     Route: 045
  11. XANAX [Concomitant]
     Active Substance: ALPRAZOLAM
  12. ALPRAZOLAM. [Concomitant]
     Active Substance: ALPRAZOLAM
     Dosage: 1 DF, TID, PRN
  13. BAYER CHEWABLE LOW DOSE BABY ASPIRIN TABLET ORANGE [Suspect]
     Active Substance: ASPIRIN
     Indication: ISCHAEMIC HEART DISEASE PROPHYLAXIS
     Dosage: 1 DF, QD
     Route: 048
     Dates: start: 2013, end: 201311

REACTIONS (10)
  - Hypoaesthesia [None]
  - Vision blurred [None]
  - Rectal haemorrhage [Recovered/Resolved]
  - Headache [Recovered/Resolved]
  - Chest pain [Recovered/Resolved]
  - Neck pain [None]
  - Dizziness [None]
  - Intentional product misuse [None]
  - Abdominal pain upper [Recovered/Resolved]
  - Labelled drug-drug interaction medication error [None]

NARRATIVE: CASE EVENT DATE: 2013
